FAERS Safety Report 4790470-1 (Version None)
Quarter: 2005Q4

REPORT INFORMATION
  Report Type: 
  Country: None (occurrence: None)
  Receive Date: 20051005
  Receipt Date: 20050921
  Transmission Date: 20060501
  Serious: Yes (Hospitalization, Other)
  Sender: FDA-Public Use
  Company Number: US_0410106496

PATIENT
  Age: 41 Year
  Sex: Female
  Weight: 83 kg

DRUGS (26)
  1. ZYPREXA [Suspect]
     Indication: AFFECTIVE DISORDER
     Dosage: 10 MG/1 AT BEDTIME
     Dates: start: 20010226, end: 20011218
  2. ZYPREXA [Suspect]
     Indication: POST-TRAUMATIC STRESS DISORDER
     Dosage: 10 MG/1 AT BEDTIME
     Dates: start: 20010226, end: 20011218
  3. OLANZIPINE/FLUOXETINE CAPSULE [Concomitant]
  4. RISPERDAL [Concomitant]
  5. BUPROPION HYDROCHLORIDE [Concomitant]
  6. GLIPIZIDE [Concomitant]
  7. METFORMIN [Concomitant]
  8. ZOLOFT [Concomitant]
  9. SYNTHROID [Concomitant]
  10. NORVASC [Concomitant]
  11. ATENOLOL [Concomitant]
  12. COMBIVENT [Concomitant]
  13. ALLEGRA [Concomitant]
  14. CYCLOBENZAPRINE HCL [Concomitant]
  15. NEURONTIN [Concomitant]
  16. CELEBREX [Concomitant]
  17. PROMETHAZINE [Concomitant]
  18. PRILOSEC (OMEPRAZOLE RATIOPHARM) [Concomitant]
  19. SINGULAIR [Concomitant]
  20. CELEXA [Concomitant]
  21. PAXIL [Concomitant]
  22. ZETIA [Concomitant]
  23. SPIRONOLACTONE [Concomitant]
  24. CLONAZEPAM [Concomitant]
  25. ATIVAN [Concomitant]
  26. HALDOL [Concomitant]

REACTIONS (18)
  - ABDOMINAL PAIN UPPER [None]
  - BILIARY DILATATION [None]
  - BLOOD PRESSURE DECREASED [None]
  - DEHYDRATION [None]
  - DIABETES MELLITUS [None]
  - DIZZINESS [None]
  - GASTRITIS [None]
  - GLOMERULOSCLEROSIS [None]
  - HEPATIC CIRRHOSIS [None]
  - HEPATIC STEATOSIS [None]
  - HEPATITIS [None]
  - HEPATOMEGALY [None]
  - IMPAIRED GASTRIC EMPTYING [None]
  - LIVER DISORDER [None]
  - MALAISE [None]
  - PERIPHERAL MOTOR NEUROPATHY [None]
  - RENAL FAILURE ACUTE [None]
  - SPLENOMEGALY [None]
